FAERS Safety Report 24431783 (Version 1)
Quarter: 2024Q4

REPORT INFORMATION
  Report Type: Report from Study
  Country: CA (occurrence: CA)
  Receive Date: 20241014
  Receipt Date: 20241014
  Transmission Date: 20250115
  Serious: Yes (Hospitalization)
  Sender: ABBVIE
  Company Number: CA-ABBVIE-5958822

PATIENT
  Age: 53 Year
  Sex: Female

DRUGS (1)
  1. SKYRIZI [Suspect]
     Active Substance: RISANKIZUMAB-RZAA
     Indication: Crohn^s disease
     Route: 058
     Dates: start: 20240412

REACTIONS (2)
  - Cholecystectomy [Recovering/Resolving]
  - Post procedural infection [Unknown]

NARRATIVE: CASE EVENT DATE: 20240101
